FAERS Safety Report 23006267 (Version 6)
Quarter: 2024Q1

REPORT INFORMATION
  Report Type: Report from Study
  Country: US (occurrence: US)
  Receive Date: 20230929
  Receipt Date: 20240216
  Transmission Date: 20240410
  Serious: Yes (Other)
  Sender: FDA-Public Use
  Company Number: US-ABBVIE-5427800

PATIENT
  Sex: Female
  Weight: 97.975 kg

DRUGS (4)
  1. RINVOQ [Suspect]
     Active Substance: UPADACITINIB
     Indication: Crohn^s disease
     Dosage: LAST ADMINISTRATION DATE: JUN 2023?FORM STRENGTH: 45 MILLIGRAM
     Route: 048
     Dates: start: 20230623
  2. RINVOQ [Suspect]
     Active Substance: UPADACITINIB
     Indication: Crohn^s disease
     Dosage: DISCONTINUED IN 2023?FREQUENCY TEXT: DAILY
     Route: 048
     Dates: start: 20230616
  3. RINVOQ [Suspect]
     Active Substance: UPADACITINIB
     Indication: Crohn^s disease
     Dosage: LAST ADMIN IN 2023
     Route: 048
     Dates: start: 20231116
  4. RINVOQ [Suspect]
     Active Substance: UPADACITINIB
     Indication: Crohn^s disease
     Dosage: FORM STRENGTH: 45 MILLIGRAM?FIRST ADMIN 2023
     Route: 048

REACTIONS (14)
  - Coronary artery occlusion [Recovered/Resolved]
  - Peripheral swelling [Not Recovered/Not Resolved]
  - Malaise [Unknown]
  - Full blood count decreased [Recovered/Resolved]
  - Asthenia [Unknown]
  - Dizziness [Unknown]
  - Cardiac operation [Recovering/Resolving]
  - Presyncope [Unknown]
  - Fall [Unknown]
  - Hiatus hernia [Unknown]
  - Full blood count decreased [Not Recovered/Not Resolved]
  - Palpitations [Unknown]
  - Peripheral swelling [Recovered/Resolved]
  - Arterial occlusive disease [Recovered/Resolved]

NARRATIVE: CASE EVENT DATE: 20230101
